FAERS Safety Report 25887195 (Version 1)
Quarter: 2025Q4

REPORT INFORMATION
  Report Type: Spontaneous
  Country: US (occurrence: None)
  Receive Date: 20251006
  Receipt Date: 20251006
  Transmission Date: 20260117
  Serious: Yes (Disabling)
  Sender: FDA-CTU
  Company Number: None

PATIENT
  Age: 56 Year
  Sex: Female
  Weight: 98.1 kg

DRUGS (1)
  1. KEYTRUDA [Suspect]
     Active Substance: PEMBROLIZUMAB
     Indication: Triple negative breast cancer

REACTIONS (7)
  - Skin irritation [None]
  - Rash [None]
  - Scar [None]
  - Tooth loss [None]
  - Gastrointestinal disorder [None]
  - Headache [None]
  - Neck pain [None]

NARRATIVE: CASE EVENT DATE: 20250801
